FAERS Safety Report 5821260-6 (Version None)
Quarter: 2008Q3

REPORT INFORMATION
  Report Type: 
  Country: None (occurrence: None)
  Receive Date: 20080722
  Receipt Date: 20080722
  Transmission Date: 20090109
  Serious: Yes (Hospitalization)
  Sender: FDA-Public Use
  Company Number: None

PATIENT
  Sex: Female
  Weight: 57.9697 kg

DRUGS (5)
  1. AUGMENTIN '125' [Suspect]
     Indication: URINARY TRACT INFECTION
     Dosage: AMOX. 100MG/CLAV. 62.5MG TID PO
     Route: 048
     Dates: start: 20080710, end: 20080714
  2. DETROL LA [Concomitant]
  3. LANTUS [Concomitant]
  4. PAXIL [Concomitant]
  5. TOPROL-XL [Concomitant]

REACTIONS (6)
  - ASTHENIA [None]
  - PAIN [None]
  - RASH ERYTHEMATOUS [None]
  - RASH PUSTULAR [None]
  - STEVENS-JOHNSON SYNDROME [None]
  - TOXIC EPIDERMAL NECROLYSIS [None]
